FAERS Safety Report 16087049 (Version 2)
Quarter: 2019Q2

REPORT INFORMATION
  Report Type: Spontaneous
  Country: JP (occurrence: JP)
  Receive Date: 20190319
  Receipt Date: 20190411
  Transmission Date: 20190711
  Serious: Yes (Death, Hospitalization, Other)
  Sender: FDA-Public Use
  Company Number: JP-TAKEDA-2019TJP004376AA

PATIENT
  Age: 79 Year
  Sex: Male

DRUGS (15)
  1. ROSUVASTATIN                       /01588602/ [Concomitant]
     Active Substance: ROSUVASTATIN CALCIUM
     Dosage: UNK
     Route: 065
  2. NOVORAPID [Concomitant]
     Active Substance: INSULIN ASPART
     Dosage: UNK
     Route: 065
  3. ACTOS [Concomitant]
     Active Substance: PIOGLITAZONE HYDROCHLORIDE
     Dosage: UNK
     Route: 065
  4. PROMAC                             /01312301/ [Concomitant]
     Active Substance: POLAPREZINC
     Dosage: UNK
     Route: 065
  5. MIYA-BM [Concomitant]
     Active Substance: CLOSTRIDIUM BUTYRICUM SPORES STRAIN M-55
     Dosage: UNK
     Route: 065
  6. NESINA [Suspect]
     Active Substance: ALOGLIPTIN BENZOATE
     Indication: TYPE 2 DIABETES MELLITUS
     Dosage: 25 MILLIGRAM
     Route: 048
     Dates: end: 201811
  7. BAYASPIRIN [Concomitant]
     Active Substance: ASPIRIN
     Dosage: UNK
     Route: 065
  8. CALONAL [Concomitant]
     Active Substance: ACETAMINOPHEN
     Dosage: UNK
     Route: 065
  9. METGLUCO [Concomitant]
     Active Substance: METFORMIN HYDROCHLORIDE
     Dosage: UNK
     Route: 065
  10. PREDONINE [Concomitant]
     Active Substance: PREDNISOLONE
     Dosage: UNK
     Route: 065
  11. VALSARTAN. [Concomitant]
     Active Substance: VALSARTAN
     Dosage: UNK
     Route: 065
  12. GLIMICRON [Concomitant]
     Active Substance: GLICLAZIDE
     Dosage: UNK
     Route: 065
  13. TAKECAB [Concomitant]
     Active Substance: VONOPRAZAN FUMURATE
     Dosage: UNK
     Route: 065
  14. SEIBULE [Concomitant]
     Active Substance: MIGLITOL
     Dosage: UNK
     Route: 065
  15. MAINTATE [Concomitant]
     Active Substance: BISOPROLOL FUMARATE
     Dosage: UNK
     Route: 065

REACTIONS (3)
  - Pemphigoid [Recovering/Resolving]
  - Sepsis [Recovering/Resolving]
  - Sepsis [Fatal]

NARRATIVE: CASE EVENT DATE: 201811
